FAERS Safety Report 9197607 (Version 3)
Quarter: 2013Q2

REPORT INFORMATION
  Report Type: Spontaneous
  Country: HR (occurrence: HR)
  Receive Date: 20130328
  Receipt Date: 20130503
  Transmission Date: 20140414
  Serious: Yes (Death)
  Sender: FDA-Public Use
  Company Number: HR-GLAXOSMITHKLINE-B0878660A

PATIENT
  Sex: Male
  Weight: 100 kg

DRUGS (13)
  1. REVOLADE [Suspect]
     Indication: IDIOPATHIC THROMBOCYTOPENIC PURPURA
     Dosage: 50MG PER DAY
     Route: 048
     Dates: start: 20130316, end: 20130318
  2. SOLUMEDROL [Concomitant]
     Indication: THROMBOCYTOPENIA
     Dosage: 100MG PER DAY
     Route: 042
     Dates: start: 20130218, end: 20130319
  3. CONTROLOC [Concomitant]
     Dosage: 40MG PER DAY
     Route: 042
     Dates: start: 20130218, end: 20130319
  4. LANITOP [Concomitant]
     Indication: CARDIOMYOPATHY
     Dosage: .1MG PER DAY
     Route: 048
     Dates: start: 20130218, end: 20130319
  5. EDEMID FORTE [Concomitant]
     Indication: CARDIOMYOPATHY
     Dosage: 125MG ALTERNATE DAYS
     Route: 042
     Dates: start: 20130218, end: 20130319
  6. DIFLUCAN [Concomitant]
     Indication: CANDIDA INFECTION
     Dosage: 200MG PER DAY
     Route: 042
     Dates: start: 20130220, end: 20130319
  7. NEBILET [Concomitant]
     Dosage: 5MG PER DAY
     Dates: start: 20130220, end: 20130319
  8. KALINOR [Concomitant]
     Indication: BLOOD POTASSIUM ABNORMAL
     Dates: start: 20130220, end: 20130319
  9. PRITOR [Concomitant]
     Dosage: 80MG PER DAY
     Dates: start: 20130220, end: 20130319
  10. AMINOPHYLLINE [Concomitant]
     Indication: CHRONIC OBSTRUCTIVE PULMONARY DISEASE
     Dates: start: 20130220, end: 20130319
  11. THROMBOCYTE CONCENTRATES [Concomitant]
     Indication: THROMBOCYTOPENIA
     Route: 042
     Dates: start: 20130218, end: 20130319
  12. INSULIN [Concomitant]
     Route: 058
     Dates: start: 20130218, end: 20130319
  13. IMMUNOGLOBULIN [Concomitant]
     Dosage: 20G PER DAY
     Route: 042

REACTIONS (3)
  - Central nervous system haemorrhage [Fatal]
  - Paralysis [Unknown]
  - Disorientation [Unknown]
